FAERS Safety Report 18435507 (Version 1)
Quarter: 2020Q4

REPORT INFORMATION
  Report Type: Report from Study
  Country: US (occurrence: US)
  Receive Date: 20201028
  Receipt Date: 20201028
  Transmission Date: 20210114
  Serious: Yes (Death, Hospitalization, Other)
  Sender: FDA-Public Use
  Company Number: US-VISTAPHARM, INC.-VER202010-001840

PATIENT
  Age: 16 Year
  Sex: Female

DRUGS (2)
  1. NOREPINEPHRINE. [Concomitant]
     Active Substance: NOREPINEPHRINE
     Indication: PRODUCT USED FOR UNKNOWN INDICATION
     Dosage: UNKNOWN
  2. OXYCODONE [Suspect]
     Active Substance: OXYCODONE
     Indication: PRODUCT USED FOR UNKNOWN INDICATION
     Dosage: UNKNOWN

REACTIONS (9)
  - Leukocytosis [Unknown]
  - Coma [Unknown]
  - Metabolic acidosis [Unknown]
  - Hepatotoxicity [Unknown]
  - Depressed level of consciousness [Unknown]
  - Toxicity to various agents [Fatal]
  - Ventricular arrhythmia [Unknown]
  - Hypotension [Unknown]
  - Respiratory depression [Unknown]
